FAERS Safety Report 12334747 (Version 1)
Quarter: 2016Q2

REPORT INFORMATION
  Report Type: Spontaneous
  Country: US (occurrence: US)
  Receive Date: 20160504
  Receipt Date: 20160504
  Transmission Date: 20160815
  Serious: No
  Sender: FDA-Public Use
  Company Number: US-BAYER-2016-081302

PATIENT
  Age: 53 Year
  Sex: Female

DRUGS (1)
  1. FINACEA [Suspect]
     Active Substance: AZELAIC ACID
     Indication: ROSACEA

REACTIONS (2)
  - Product quality issue [None]
  - Rosacea [None]

NARRATIVE: CASE EVENT DATE: 201602
